FAERS Safety Report 19839959 (Version 1)
Quarter: 2021Q3

REPORT INFORMATION
  Report Type: Report from Study
  Country: None (occurrence: CL)
  Receive Date: 20210916
  Receipt Date: 20210916
  Transmission Date: 20211014
  Serious: Yes (Other)
  Sender: FDA-Public Use
  Company Number: CL-ABBVIE-20K-034-3464971-00

PATIENT
  Age: 45 Year
  Sex: Male

DRUGS (1)
  1. HUMIRA [Suspect]
     Active Substance: ADALIMUMAB
     Indication: CROHN^S DISEASE
     Route: 058
     Dates: start: 20170424, end: 202006

REACTIONS (5)
  - Crohn^s disease [Not Recovered/Not Resolved]
  - Colitis [Unknown]
  - Crohn^s disease [Recovered/Resolved]
  - Haemorrhage [Unknown]
  - Fear [Unknown]

NARRATIVE: CASE EVENT DATE: 202006
